FAERS Safety Report 5021862-3 (Version None)
Quarter: 2006Q2

REPORT INFORMATION
  Report Type: 
  Country: None (occurrence: None)
  Receive Date: 20060609
  Receipt Date: 20060530
  Transmission Date: 20061013
  Serious: Yes (Hospitalization)
  Sender: FDA-Public Use
  Company Number: PHBS2006GT07987

PATIENT
  Age: 74 Year
  Sex: Male

DRUGS (3)
  1. DIGOXIN [Concomitant]
     Dosage: 10 DRPS/DAY
  2. FORADIL [Suspect]
     Indication: CHRONIC OBSTRUCTIVE PULMONARY DISEASE
     Dosage: 2 DF/DAY
  3. NEBILET [Concomitant]

REACTIONS (3)
  - EXTRASYSTOLES [None]
  - THERAPEUTIC AGENT TOXICITY [None]
  - VENTRICULAR EXTRASYSTOLES [None]
